FAERS Safety Report 4898653-7 (Version None)
Quarter: 2006Q1

REPORT INFORMATION
  Report Type: 
  Country: None (occurrence: None)
  Receive Date: 20060202
  Receipt Date: 20060104
  Transmission Date: 20060701
  Serious: Yes (Other)
  Sender: FDA-Public Use
  Company Number: 2006UW00127

PATIENT
  Age: 22418 Day
  Sex: Female
  Weight: 70.9 kg

DRUGS (6)
  1. CRESTOR [Suspect]
     Indication: BLOOD CHOLESTEROL INCREASED
     Route: 048
     Dates: start: 20050802, end: 20051222
  2. LIPITOR [Concomitant]
     Dates: end: 20050721
  3. NORVASC [Concomitant]
     Indication: BLOOD PRESSURE
     Route: 048
  4. SYNTHROID [Concomitant]
     Indication: THYROID DISORDER
     Route: 048
  5. DIOVAN [Concomitant]
     Indication: BLOOD PRESSURE
     Route: 048
  6. COUMADIN [Concomitant]
     Indication: DEEP VEIN THROMBOSIS
     Route: 048

REACTIONS (1)
  - RENAL FAILURE [None]
